FAERS Safety Report 20518179 (Version 1)
Quarter: 2022Q1

REPORT INFORMATION
  Report Type: Spontaneous
  Country: US (occurrence: None)
  Receive Date: 20220224
  Receipt Date: 20220224
  Transmission Date: 20220423
  Serious: Yes (Other)
  Sender: FDA-Public Use
  Company Number: None

PATIENT
  Age: 70 Year
  Sex: Female
  Weight: 73.94 kg

DRUGS (4)
  1. MUPIROCIN [Suspect]
     Active Substance: MUPIROCIN
     Indication: Infection prophylaxis
  2. VITAMIN C [Concomitant]
     Active Substance: ASCORBIC ACID
  3. Children organic multe [Concomitant]
  4. Olive leaf herbal [Concomitant]

REACTIONS (5)
  - Application site vesicles [None]
  - Pain [None]
  - Oral mucosal scar [None]
  - Rhinalgia [None]
  - Contraindicated product administered [None]

NARRATIVE: CASE EVENT DATE: 20210720
